FAERS Safety Report 15488003 (Version 3)
Quarter: 2019Q1

REPORT INFORMATION
  Report Type: Report from Study
  Country: US (occurrence: US)
  Receive Date: 20181011
  Receipt Date: 20190111
  Transmission Date: 20190417
  Serious: No
  Sender: FDA-Public Use
  Company Number: PHEH2018US042251

PATIENT
  Sex: Male

DRUGS (1)
  1. COSENTYX [Suspect]
     Active Substance: SECUKINUMAB
     Dosage: 300 MG, QW
     Route: 058

REACTIONS (7)
  - Burning sensation [Unknown]
  - Concomitant disease aggravated [Not Recovered/Not Resolved]
  - Pain [Unknown]
  - Drug effect incomplete [Unknown]
  - Scratch [Unknown]
  - Urticaria [Unknown]
  - Skin haemorrhage [Unknown]
